FAERS Safety Report 8495442-1 (Version None)
Quarter: 2012Q3

REPORT INFORMATION
  Report Type: 
  Country: None (occurrence: None)
  Receive Date: 20120709
  Receipt Date: 20120703
  Transmission Date: 20120928
  Serious: Yes (Disabling, Other)
  Sender: FDA-Public Use
  Company Number: US-PFIZER INC-2012103488

PATIENT
  Sex: Female

DRUGS (5)
  1. LIPITOR [Suspect]
     Indication: BLOOD CHOLESTEROL INCREASED
     Dosage: 40 MG, DAILY
  2. LIPITOR [Suspect]
     Dosage: 40 MG, UNK
  3. NORVASC [Suspect]
     Indication: HYPERTENSION
     Dosage: 40 MG, DAILY
  4. LIPITOR [Suspect]
     Dosage: UNK
  5. NORVASC [Suspect]
     Dosage: UNK

REACTIONS (6)
  - BREAST CANCER FEMALE [None]
  - ARTHROPATHY [None]
  - HYPOACUSIS [None]
  - DYSPHONIA [None]
  - GENERAL PHYSICAL HEALTH DETERIORATION [None]
  - MALAISE [None]
